FAERS Safety Report 10673972 (Version 1)
Quarter: 2014Q4

REPORT INFORMATION
  Report Type: Spontaneous
  Country: US (occurrence: US)
  Receive Date: 20141224
  Receipt Date: 20141224
  Transmission Date: 20150529
  Serious: Yes (Hospitalization)
  Sender: FDA-Public Use
  Company Number: US-ASTRAZENECA-2014SE97780

PATIENT
  Sex: Male

DRUGS (2)
  1. METOPROLOL-UNSPECIFIED [Suspect]
     Active Substance: METOPROLOL
     Dosage: UNKNOWN
     Route: 065
  2. TOPROL XL [Suspect]
     Active Substance: METOPROLOL SUCCINATE
     Dosage: UNKNOWN
     Route: 048

REACTIONS (1)
  - Diarrhoea [Unknown]
